FAERS Safety Report 6730625-X (Version None)
Quarter: 2010Q2

REPORT INFORMATION
  Report Type: 
  Country: None (occurrence: None)
  Receive Date: 20100518
  Receipt Date: 20100507
  Transmission Date: 20101027
  Serious: Yes (Other)
  Sender: FDA-Public Use
  Company Number: US-PFIZER INC-2010058581

PATIENT
  Sex: Female

DRUGS (2)
  1. DILANTIN-125 [Suspect]
     Dosage: UNK
  2. PHENYTOIN [Suspect]
     Dosage: UNK

REACTIONS (2)
  - CONVULSION [None]
  - DRUG INEFFECTIVE [None]
